FAERS Safety Report 6898395-2 (Version None)
Quarter: 2010Q3

REPORT INFORMATION
  Report Type: 
  Country: None (occurrence: None)
  Receive Date: 20100802
  Receipt Date: 20071012
  Transmission Date: 20110219
  Serious: No
  Sender: FDA-Public Use
  Company Number: US-PFIZER INC-2007085938

PATIENT
  Sex: Female
  Weight: 85.3 kg

DRUGS (10)
  1. LYRICA [Suspect]
     Indication: SURGERY
     Dates: start: 20071001
  2. WELLBUTRIN [Concomitant]
  3. XANAX [Concomitant]
  4. VALIUM [Concomitant]
  5. ANTIDEPRESSANTS [Concomitant]
  6. PREVACID [Concomitant]
  7. DRUG USED IN DIABETES [Concomitant]
  8. METFORMIN HCL [Concomitant]
  9. GLIPIZIDE [Concomitant]
  10. PREVPAC [Concomitant]

REACTIONS (1)
  - MYALGIA [None]
